FAERS Safety Report 9237152 (Version 3)
Quarter: 2014Q2

REPORT INFORMATION
  Report Type: Spontaneous
  Country: IT (occurrence: IT)
  Receive Date: 20130417
  Receipt Date: 20140416
  Transmission Date: 20141212
  Serious: Yes (Hospitalization, Other)
  Sender: FDA-Public Use
  Company Number: CHPA2013IT006573

PATIENT
  Age: 46 Year
  Sex: Female
  Weight: 50 kg

DRUGS (2)
  1. IBUPROFEN [Suspect]
     Indication: DRUG ABUSE
     Dosage: 2400 MG, ONCE/SINGLE
     Route: 048
     Dates: start: 20130302, end: 20130302
  2. TAVOR (LORAZEPAM) [Suspect]
     Indication: INTENTIONAL OVERDOSE
     Dosage: 50 MG, ONCE/SINGLE
     Route: 002
     Dates: start: 20130302, end: 20130302

REACTIONS (2)
  - Drug abuse [Recovered/Resolved]
  - Psychomotor skills impaired [Recovered/Resolved]
